FAERS Safety Report 5322780-3 (Version None)
Quarter: 2007Q2

REPORT INFORMATION
  Report Type: 
  Country: None (occurrence: None)
  Receive Date: 20070511
  Receipt Date: 20070508
  Transmission Date: 20071010
  Serious: Yes (Life-Threatening, Other)
  Sender: FDA-Public Use
  Company Number: US-ROXANE LABORATORIES, INC-2007-BP-06311RO

PATIENT

DRUGS (1)
  1. METHADONE HCL [Suspect]
     Dosage: 25 MG BID X 2 DOSES

REACTIONS (2)
  - CARDIAC ARREST [None]
  - DRUG DISPENSING ERROR [None]
